FAERS Safety Report 12843969 (Version 1)
Quarter: 2016Q4

REPORT INFORMATION
  Report Type: Report from Study
  Country: DE (occurrence: DE)
  Receive Date: 20161013
  Receipt Date: 20161013
  Transmission Date: 20170207
  Serious: Yes (Death)
  Sender: FDA-Public Use
  Company Number: DE-CELGENEUS-THADE200700044

PATIENT
  Age: 52 Year
  Sex: Female
  Weight: 67 kg

DRUGS (10)
  1. RILUTEK [Concomitant]
     Active Substance: RILUZOLE
     Indication: AMYOTROPHIC LATERAL SCLEROSIS
     Route: 048
  2. BALDRIAN EXTRA [Concomitant]
     Indication: BLOOD PRESSURE FLUCTUATION
     Route: 065
     Dates: start: 20060307, end: 20060726
  3. FRAXIPARINE [Concomitant]
     Active Substance: NADROPARIN CALCIUM
     Indication: PRODUCT USED FOR UNKNOWN INDICATION
     Route: 065
  4. CANDESARTAN [Concomitant]
     Active Substance: CANDESARTAN
     Indication: HYPERTENSION
     Route: 065
  5. THALIDOMIDE PHARMION [Suspect]
     Active Substance: THALIDOMIDE
     Indication: AMYOTROPHIC LATERAL SCLEROSIS
     Dosage: GRADUALLY INCREASED FROM 100 MG/DAY TO 400 MG/DAY
     Route: 048
     Dates: start: 20060215, end: 20060801
  6. MINISITON [Concomitant]
     Indication: CONTRACEPTION
     Route: 065
     Dates: start: 20060115
  7. ATACAND [Concomitant]
     Active Substance: CANDESARTAN CILEXETIL
     Indication: BLOOD PRESSURE FLUCTUATION
     Route: 065
     Dates: start: 20060307, end: 20060726
  8. JODINE [Concomitant]
     Indication: GOITRE
     Route: 065
     Dates: start: 19990101
  9. QUININE SULFATE. [Concomitant]
     Active Substance: QUININE SULFATE
     Indication: MUSCLE SPASMS
     Route: 065
     Dates: start: 20060412
  10. MACROGOL [Concomitant]
     Active Substance: POLYETHYLENE GLYCOLS
     Indication: CONSTIPATION
     Route: 065
     Dates: start: 20060412

REACTIONS (5)
  - Bradycardia [Fatal]
  - Asthenia [Recovered/Resolved]
  - Hypoaesthesia [Recovered/Resolved]
  - Somnolence [Recovered/Resolved]
  - Dizziness [Recovered/Resolved]

NARRATIVE: CASE EVENT DATE: 20060215
